FAERS Safety Report 4285633-8 (Version None)
Quarter: 2004Q1

REPORT INFORMATION
  Report Type: 
  Country: None (occurrence: None)
  Receive Date: 20040203
  Receipt Date: 20040128
  Transmission Date: 20041129
  Serious: Yes (Hospitalization)
  Sender: FDA-Public Use
  Company Number: NUBN20040002

PATIENT
  Age: 4 Year
  Sex: Female
  Weight: 10 kg

DRUGS (21)
  1. NUBAIN [Suspect]
  2. ACETAMINOPHEN [Suspect]
     Dosage: 100 MG 6X/DAY IV
     Route: 042
     Dates: start: 20031028, end: 20031030
  3. LASIX [Suspect]
     Dosage: 100 MG 6 X /DAY IV
     Route: 042
     Dates: start: 20031028, end: 20031030
  4. MORPHINE [Suspect]
     Dosage: IV
     Route: 042
     Dates: start: 20031028, end: 20031031
  5. GENTAMICIN [Suspect]
     Dosage: IV
     Route: 042
     Dates: start: 20031029, end: 20031030
  6. VANCOCIN (VANCOMYCIN) [Suspect]
     Dosage: IV
     Route: 042
     Dates: start: 20031029, end: 20031105
  7. ALDACTONE [Suspect]
     Dosage: 30 MG DAILY PO
     Route: 048
     Dates: start: 20031113, end: 20031209
  8. DIGOXIN [Suspect]
  9. ACETAMINOPHEN [Suspect]
  10. CODEINE SUL TAB [Suspect]
  11. KAYEXALATE [Suspect]
  12. ROCEPHIN [Suspect]
  13. CLAFORAN [Suspect]
  14. NORCURON [Suspect]
  15. OMEPRAZOLE [Suspect]
  16. COROTROPE [Suspect]
  17. EPINEPHRINE [Suspect]
  18. FENTANYL [Suspect]
  19. NARCOZEP (FLUNITRAZEPAM) [Suspect]
  20. ASPEGIC 1000 [Suspect]
  21. CALCIDIA (CALCIUM CARBONATE) [Suspect]

REACTIONS (1)
  - PANCYTOPENIA [None]
